FAERS Safety Report 8247502-8 (Version None)
Quarter: 2012Q1

REPORT INFORMATION
  Report Type: 
  Country: None (occurrence: None)
  Receive Date: 20120330
  Receipt Date: 20120328
  Transmission Date: 20120608
  Serious: Yes (Other)
  Sender: FDA-Public Use
  Company Number: US-TEVA-330419USA

PATIENT
  Sex: Female

DRUGS (1)
  1. FENTORA [Suspect]
     Route: 002

REACTIONS (4)
  - CERVICAL VERTEBRAL FRACTURE [None]
  - MONOPLEGIA [None]
  - ROAD TRAFFIC ACCIDENT [None]
  - NEOPLASM MALIGNANT [None]
